FAERS Safety Report 9563893 (Version 1)
Quarter: 2013Q3

REPORT INFORMATION
  Report Type: Spontaneous
  Country: US (occurrence: US)
  Receive Date: 20130927
  Receipt Date: 20130927
  Transmission Date: 20140515
  Serious: No
  Sender: FDA-Public Use
  Company Number: US-009507513-1309USA013037

PATIENT
  Age: 3 Year
  Sex: Female
  Weight: 19.5 kg

DRUGS (2)
  1. CLARITIN CHEWABLE TABLETS [Suspect]
     Indication: SEASONAL ALLERGY
     Dosage: 5 MG, BID
     Dates: start: 20130922
  2. CLARITIN CHEWABLE TABLETS [Suspect]
     Dosage: 5 MG, QD
     Dates: start: 2013

REACTIONS (1)
  - Overdose [Unknown]
